FAERS Safety Report 9096220 (Version 1)
Quarter: 2013Q1

REPORT INFORMATION
  Report Type: Spontaneous
  Country: US (occurrence: US)
  Receive Date: 20130207
  Receipt Date: 20130207
  Transmission Date: 20140127
  Serious: Yes (Other)
  Sender: FDA-Public Use
  Company Number: US-ASTRAZENECA-2013SE07029

PATIENT
  Age: 88 Year
  Sex: Male
  Weight: 73.5 kg

DRUGS (16)
  1. CRESTOR [Suspect]
     Indication: BLOOD CHOLESTEROL INCREASED
     Route: 048
     Dates: start: 2008
  2. JANTOVEN [Interacting]
     Dosage: UNKNOWN DOSE DAILY
  3. RESTASIS [Interacting]
     Indication: EYE DISORDER
     Dosage: UNKNOWN DOSE TWO TIMES A DAY
  4. PROCRIT [Concomitant]
     Route: 058
  5. GENUVIA [Concomitant]
     Indication: TYPE 2 DIABETES MELLITUS
  6. LEVAMIR (INSULIN) [Concomitant]
  7. BYSTOLIC [Concomitant]
     Indication: HYPERTENSION
  8. DIOVAN [Concomitant]
     Indication: HYPERTENSION
  9. MVI [Concomitant]
  10. CARBOMETHYLCELLULOSE [Concomitant]
     Indication: DRY EYE
     Dosage: UNKNOWN DOSE AS REQUIRED
  11. VIT D3 [Concomitant]
  12. TERAZOSIN [Concomitant]
  13. TORESEMIDE [Concomitant]
  14. FLOMAX [Concomitant]
     Dosage: UNKNOWN DOSE AT NIGHT
  15. FLUTICASONE PROPIANATE [Concomitant]
     Indication: RHINORRHOEA
     Dosage: UNKNOWN DOSE TWO TIMES A DAY
  16. MECLAZINE [Concomitant]
     Dosage: UNKNOWN DOSE AS REQUIRED

REACTIONS (5)
  - Drug interaction [Unknown]
  - Myelodysplastic syndrome [Unknown]
  - Blood urine present [Recovered/Resolved]
  - Urine abnormality [Not Recovered/Not Resolved]
  - International normalised ratio increased [Unknown]
